FAERS Safety Report 11288019 (Version 1)
Quarter: 2015Q3

REPORT INFORMATION
  Report Type: Spontaneous
  Country: US (occurrence: US)
  Receive Date: 20150721
  Receipt Date: 20150721
  Transmission Date: 20151125
  Serious: No
  Sender: FDA-Public Use
  Company Number: US-UNITED THERAPEUTICS-UNT-2015-002602

PATIENT
  Age: 51 Year
  Sex: Female
  Weight: 81.63 kg

DRUGS (4)
  1. ASPIRIN                            /00002701/ [Concomitant]
     Active Substance: ASPIRIN
     Indication: PRODUCT USED FOR UNKNOWN INDICATION
  2. REMODULIN [Suspect]
     Active Substance: TREPROSTINIL
     Indication: PULMONARY ARTERIAL HYPERTENSION
     Dosage: 0.034 ?G/KG/MIN, CONTINUING
     Route: 058
     Dates: start: 20140724
  3. ORENITRAM [Suspect]
     Active Substance: TREPROSTINIL
     Indication: PRODUCT USED FOR UNKNOWN INDICATION
     Dosage: 2.5 MG, TID
     Route: 048
  4. TRACLEER [Concomitant]
     Active Substance: BOSENTAN
     Indication: PRODUCT USED FOR UNKNOWN INDICATION

REACTIONS (11)
  - Infusion site pain [Unknown]
  - Device dislocation [Unknown]
  - Nausea [Unknown]
  - Flushing [Unknown]
  - Infection [Unknown]
  - Pain in extremity [Unknown]
  - Headache [Unknown]
  - Chest discomfort [Unknown]
  - Dyspnoea [Unknown]
  - Pain in jaw [Unknown]
  - Drug dose omission [Unknown]

NARRATIVE: CASE EVENT DATE: 201503
